FAERS Safety Report 5148926-8 (Version None)
Quarter: 2006Q4

REPORT INFORMATION
  Report Type: 
  Country: None (occurrence: None)
  Receive Date: 20061113
  Receipt Date: 20061010
  Transmission Date: 20070319
  Serious: Yes (Other)
  Sender: FDA-Public Use
  Company Number: PHNU2006DE03410

PATIENT
  Age: 77 Year
  Sex: Female

DRUGS (1)
  1. EXELON [Suspect]
     Indication: DEMENTIA
     Dosage: 3 MG, ONCE/SINGLE
     Route: 048
     Dates: start: 20060906, end: 20060906

REACTIONS (1)
  - STATUS EPILEPTICUS [None]
